FAERS Safety Report 9863776 (Version 1)
Quarter: 2014Q1

REPORT INFORMATION
  Report Type: Spontaneous
  Country: CO (occurrence: CO)
  Receive Date: 20140203
  Receipt Date: 20140203
  Transmission Date: 20141002
  Serious: Yes (Death)
  Sender: FDA-Public Use
  Company Number: CO-UCBSA-111268

PATIENT
  Sex: Female

DRUGS (3)
  1. NEUPRO [Suspect]
     Indication: PARKINSON^S DISEASE
     Dosage: DAILY DOSE 6 MG
     Route: 062
     Dates: start: 20130925, end: 20131116
  2. LEVODOPA/CARBIDOPA [Concomitant]
  3. BIPERIDEN [Concomitant]

REACTIONS (3)
  - Pneumonia [Fatal]
  - Arthritis [Unknown]
  - Dyspepsia [Unknown]
